FAERS Safety Report 7083726 (Version 10)
Quarter: 2012Q4

REPORT INFORMATION
  Report Type: 
  Country: CA (occurrence: CA)
  Receive Date: 20090817
  Receipt Date: 20121016
  Transmission Date: 20130627
  Serious: Yes (Death, Hospitalization, Other)
  Sender: FDA-Public Use
  Company Number: PHHY2008CA11779

PATIENT
  Age: 62 None
  Sex: Male

DRUGS (3)
  1. SANDOSTATIN LAR [Suspect]
     Indication: CARCINOID TUMOUR
     Dosage: 40 mg, every 4 weeks
     Route: 030
     Dates: start: 20060321
  2. SANDOSTATIN LAR [Suspect]
     Dosage: 40 mg, every 4 weeks
     Route: 030
  3. SANDOSTATIN LAR [Suspect]
     Dosage: 60 mg, QMO
     Route: 030
     Dates: end: 20101014

REACTIONS (14)
  - Malignant neoplasm progression [Fatal]
  - Terminal state [Unknown]
  - General physical health deterioration [Unknown]
  - Weight decreased [Not Recovered/Not Resolved]
  - Nephrolithiasis [Unknown]
  - Haematuria [Unknown]
  - Decreased appetite [Unknown]
  - Nausea [Unknown]
  - Renal pain [Unknown]
  - Diarrhoea [Not Recovered/Not Resolved]
  - Asthenia [Not Recovered/Not Resolved]
  - Injection site reaction [Unknown]
  - Injection site scab [Unknown]
  - Flushing [Unknown]
